FAERS Safety Report 19969503 (Version 1)
Quarter: 2021Q4

REPORT INFORMATION
  Report Type: Spontaneous
  Country: AT (occurrence: AT)
  Receive Date: 20211019
  Receipt Date: 20211019
  Transmission Date: 20220303
  Serious: Yes (Other)
  Sender: FDA-Public Use
  Company Number: AT-NORDICGR-2021001793

PATIENT
  Age: 40 Year
  Sex: Female

DRUGS (2)
  1. MISOPROSTOL [Suspect]
     Active Substance: MISOPROSTOL
     Indication: Abortion induced
     Dosage: 800 UG, SINGLE (2 X 400 UG)
     Route: 065
     Dates: start: 20210624, end: 20210624
  2. MIFEPRISTONE [Suspect]
     Active Substance: MIFEPRISTONE
     Indication: Abortion induced
     Dosage: 600 MG, SINGLE
     Route: 065
     Dates: start: 20210622, end: 20210622

REACTIONS (4)
  - Maternal exposure during pregnancy [Unknown]
  - Off label use [Unknown]
  - Drug ineffective for unapproved indication [Unknown]
  - Surgery [Unknown]

NARRATIVE: CASE EVENT DATE: 20210624
